FAERS Safety Report 13070048 (Version 1)
Quarter: 2016Q4

REPORT INFORMATION
  Report Type: Report from Study
  Country: None (occurrence: US)
  Receive Date: 20161228
  Receipt Date: 20161228
  Transmission Date: 20170207
  Serious: Yes (Other)
  Sender: FDA-Public Use
  Company Number: US-ABBVIE-16P-163-1823566-00

PATIENT
  Sex: Female

DRUGS (2)
  1. LUPRON DEPOT [Suspect]
     Active Substance: LEUPROLIDE ACETATE
     Indication: ENDOMETRIOSIS
     Route: 050
     Dates: end: 201311
  2. LUPRON DEPOT [Suspect]
     Active Substance: LEUPROLIDE ACETATE
     Indication: ENDOMETRIOSIS
     Route: 050
     Dates: start: 201303

REACTIONS (6)
  - Endometriosis [Unknown]
  - Pelvic pain [Unknown]
  - Endometriosis [Not Recovered/Not Resolved]
  - Hysterectomy [Unknown]
  - Appendicectomy [Unknown]
  - Endometriosis [Unknown]

NARRATIVE: CASE EVENT DATE: 2014
